FAERS Safety Report 21710033 (Version 1)
Quarter: 2022Q4

REPORT INFORMATION
  Report Type: Spontaneous
  Country: FR (occurrence: FR)
  Receive Date: 20221211
  Receipt Date: 20221211
  Transmission Date: 20230113
  Serious: Yes (Disabling, Other)
  Sender: FDA-Public Use
  Company Number: None

PATIENT
  Age: 42 Year
  Sex: Male
  Weight: 100 kg

DRUGS (1)
  1. STELARA [Suspect]
     Active Substance: USTEKINUMAB
     Indication: Crohn^s disease
     Route: 058
     Dates: start: 20220817, end: 20221021

REACTIONS (2)
  - Cerebrovascular accident [Recovered/Resolved with Sequelae]
  - Palpitations [Recovering/Resolving]

NARRATIVE: CASE EVENT DATE: 20220901
